FAERS Safety Report 9557629 (Version 1)
Quarter: 2013Q3

REPORT INFORMATION
  Report Type: Spontaneous
  Country: GB (occurrence: GB)
  Receive Date: 20130926
  Receipt Date: 20130926
  Transmission Date: 20140515
  Serious: Yes (Other)
  Sender: FDA-Public Use
  Company Number: GB-GLAXOSMITHKLINE-B0923887A

PATIENT
  Age: 37 Year
  Sex: Female
  Weight: 45 kg

DRUGS (3)
  1. LAMOTRIGINE [Suspect]
     Indication: OBSESSIVE-COMPULSIVE DISORDER
     Route: 048
     Dates: start: 201307, end: 201309
  2. FLUOXETINE [Concomitant]
     Indication: OBSESSIVE-COMPULSIVE DISORDER
     Route: 048
  3. DIAZEPAM [Concomitant]
     Route: 048

REACTIONS (2)
  - Swelling face [Recovering/Resolving]
  - Dyspnoea [Recovering/Resolving]
